FAERS Safety Report 6386671-1 (Version None)
Quarter: 2009Q4

REPORT INFORMATION
  Report Type: 
  Country: None (occurrence: None)
  Receive Date: 20091002
  Receipt Date: 20090923
  Transmission Date: 20100525
  Serious: Yes (Hospitalization)
  Sender: FDA-Public Use
  Company Number: US-JNJFOC-20090907524

PATIENT
  Age: 10 Year
  Sex: Male

DRUGS (4)
  1. CHILDREN'S TYLENOL [Suspect]
     Route: 048
  2. CHILDREN'S TYLENOL [Suspect]
     Indication: PYREXIA
     Route: 048
  3. CHILDREN'S ZYRTEC ALLERGY [Suspect]
     Indication: SEASONAL ALLERGY
  4. MULTIVITAMINS W/FLUORIDE [Concomitant]
     Indication: VITAMIN SUPPLEMENTATION

REACTIONS (4)
  - GASTROENTERITIS SALMONELLA [None]
  - HYPOXIA [None]
  - PNEUMONIA [None]
  - TRANSMISSION OF AN INFECTIOUS AGENT VIA A MEDICINAL PRODUCT [None]
